FAERS Safety Report 7059401-8 (Version None)
Quarter: 2010Q4

REPORT INFORMATION
  Report Type: 
  Country: None (occurrence: None)
  Receive Date: 20101025
  Receipt Date: 20101013
  Transmission Date: 20110411
  Serious: Yes (Hospitalization)
  Sender: FDA-Public Use
  Company Number: FR-JNJFOC-20101003616

PATIENT
  Age: 89 Year
  Sex: Male

DRUGS (13)
  1. TAVANIC [Suspect]
     Indication: BRONCHITIS
     Route: 048
  2. CORTANCYL [Suspect]
     Indication: BRONCHITIS
     Route: 048
  3. PULMICORT [Suspect]
     Indication: BRONCHITIS
     Route: 055
  4. VENTOLIN [Suspect]
     Indication: BRONCHITIS
     Route: 055
  5. LASIX [Suspect]
     Indication: BRONCHITIS
     Route: 048
  6. PLAVIX [Concomitant]
     Route: 065
  7. COAPROVEL [Concomitant]
     Route: 065
  8. CACIT D3 [Concomitant]
     Route: 065
  9. FORLAX [Concomitant]
     Route: 065
  10. VASTAREL [Concomitant]
     Route: 065
  11. DIAMICRON [Concomitant]
     Route: 065
  12. HYPERIUM [Concomitant]
     Route: 065
  13. ARICEPT [Concomitant]
     Route: 065

REACTIONS (4)
  - CONFUSIONAL STATE [None]
  - DEHYDRATION [None]
  - HALLUCINATION [None]
  - RELAPSING FEVER [None]
